FAERS Safety Report 4375343-0 (Version None)
Quarter: 2004Q2

REPORT INFORMATION
  Report Type: 
  Country: None (occurrence: None)
  Receive Date: 20040601
  Receipt Date: 20040513
  Transmission Date: 20050107
  Serious: Yes (Other)
  Sender: FDA-Public Use
  Company Number: 601254

PATIENT
  Age: 1 Year
  Sex: Male
  Weight: 11 kg

DRUGS (1)
  1. TISSEEL VH KIT [Suspect]
     Indication: SKIN GRAFT
     Dates: start: 20040423, end: 20040423

REACTIONS (4)
  - GRAFT COMPLICATION [None]
  - IMPAIRED HEALING [None]
  - INFECTION [None]
  - SKIN GRAFT FAILURE [None]
